FAERS Safety Report 5692372-5 (Version None)
Quarter: 2008Q2

REPORT INFORMATION
  Report Type: 
  Country: None (occurrence: None)
  Receive Date: 20080402
  Receipt Date: 20080319
  Transmission Date: 20081010
  Serious: Yes (Other)
  Sender: FDA-Public Use
  Company Number: DE-GENENTECH-257918

PATIENT
  Age: 86 Year
  Sex: Male

DRUGS (1)
  1. LUCENTIS [Suspect]
     Indication: DRUG USE FOR UNKNOWN INDICATION
     Dosage: UNK, TID
     Route: 031

REACTIONS (1)
  - DETACHMENT OF RETINAL PIGMENT EPITHELIUM [None]
